FAERS Safety Report 14758522 (Version 1)
Quarter: 2018Q2

REPORT INFORMATION
  Report Type: Spontaneous
  Country: US (occurrence: US)
  Receive Date: 20180413
  Receipt Date: 20180413
  Transmission Date: 20180711
  Serious: No
  Sender: FDA-Public Use
  Company Number: US-NOVOPROD-588777

PATIENT
  Age: 56 Year
  Sex: Female

DRUGS (2)
  1. TRESIBA [Suspect]
     Active Substance: INSULIN DEGLUDEC
     Indication: TYPE 1 DIABETES MELLITUS
     Dosage: 16 U, QD IN THE MORNING
     Route: 058
  2. HUMALOG [Concomitant]
     Active Substance: INSULIN LISPRO
     Indication: PRODUCT USED FOR UNKNOWN INDICATION

REACTIONS (4)
  - Drug dose omission [Recovered/Resolved]
  - Colonoscopy [Recovered/Resolved]
  - Blood glucose decreased [Recovered/Resolved]
  - Endoscopy [Recovered/Resolved]

NARRATIVE: CASE EVENT DATE: 20180221
